FAERS Safety Report 14624997 (Version 1)
Quarter: 2018Q1

REPORT INFORMATION
  Report Type: Spontaneous
  Country: US (occurrence: US)
  Receive Date: 20180312
  Receipt Date: 20180312
  Transmission Date: 20180509
  Serious: Yes (Other)
  Sender: FDA-Public Use
  Company Number: US-PFIZER INC-2018093425

PATIENT
  Age: 55 Year
  Sex: Female

DRUGS (1)
  1. XELJANZ [Suspect]
     Active Substance: TOFACITINIB CITRATE
     Dosage: 5 MG, TWICE A DAY

REACTIONS (6)
  - Condition aggravated [Unknown]
  - Pneumonia [Unknown]
  - Fatigue [Unknown]
  - Hypoaesthesia [Unknown]
  - Influenza [Unknown]
  - Pain in extremity [Unknown]
